FAERS Safety Report 11679539 (Version 3)
Quarter: 2015Q4

REPORT INFORMATION
  Report Type: Spontaneous
  Country: US (occurrence: US)
  Receive Date: 20151027
  Receipt Date: 20151110
  Transmission Date: 20160304
  Serious: No
  Sender: FDA-Public Use
  Company Number: US-ELI_LILLY_AND_COMPANY-US201003003825

PATIENT
  Age: 62 Year
  Sex: Female
  Weight: 46.71 kg

DRUGS (3)
  1. FORTEO [Suspect]
     Active Substance: TERIPARATIDE
     Indication: OSTEOPOROSIS
     Dosage: 20 UG, QD
     Dates: start: 201006, end: 201203
  2. CALCIUM [Concomitant]
     Active Substance: CALCIUM
  3. VITAMIN D [Concomitant]
     Active Substance: CHOLECALCIFEROL

REACTIONS (11)
  - Skin tightness [Unknown]
  - Rash generalised [Unknown]
  - Bone density decreased [Unknown]
  - Injection site hypertrophy [Not Recovered/Not Resolved]
  - Glycosylated haemoglobin increased [Unknown]
  - Anger [Not Recovered/Not Resolved]
  - Low density lipoprotein increased [Unknown]
  - Weight increased [Unknown]
  - Blood cholesterol increased [Unknown]
  - Osteoporosis [Unknown]
  - Drug ineffective [Unknown]

NARRATIVE: CASE EVENT DATE: 201203
